FAERS Safety Report 4336035-7 (Version None)
Quarter: 2004Q2

REPORT INFORMATION
  Report Type: 
  Country: None (occurrence: None)
  Receive Date: 20040406
  Receipt Date: 20040324
  Transmission Date: 20050107
  Serious: Yes (Hospitalization)
  Sender: FDA-Public Use
  Company Number: 2004205485ES

PATIENT
  Age: 63 Year
  Sex: Female

DRUGS (1)
  1. DETRUSITOL (TOLTERODINE) TABLET, 2MG [Suspect]
     Indication: URINARY INCONTINENCE
     Dosage: ORAL
     Route: 048

REACTIONS (1)
  - EPISTAXIS [None]
